FAERS Safety Report 16728324 (Version 1)
Quarter: 2019Q3

REPORT INFORMATION
  Report Type: Spontaneous
  Country: US (occurrence: US)
  Receive Date: 20190822
  Receipt Date: 20190822
  Transmission Date: 20191005
  Serious: No
  Sender: FDA-Public Use
  Company Number: US-TEVA-2019-US-1094640

PATIENT
  Sex: Female

DRUGS (1)
  1. COPAXONE [Suspect]
     Active Substance: GLATIRAMER ACETATE
     Indication: MULTIPLE SCLEROSIS
     Route: 065

REACTIONS (5)
  - Product quality issue [Unknown]
  - Feeling hot [Not Recovered/Not Resolved]
  - Throat irritation [Unknown]
  - Pruritus generalised [Unknown]
  - Urticaria [Not Recovered/Not Resolved]
